FAERS Safety Report 7691610-7 (Version None)
Quarter: 2011Q3

REPORT INFORMATION
  Report Type: 
  Country: None (occurrence: None)
  Receive Date: 20110818
  Receipt Date: 20110811
  Transmission Date: 20111222
  Serious: Yes (Other)
  Sender: FDA-Public Use
  Company Number: US-BAYER-201037500NA

PATIENT
  Age: 24 Year
  Sex: Female
  Weight: 56.689 kg

DRUGS (5)
  1. HYDROCODONE [Concomitant]
  2. TRAMADOL HCL [Concomitant]
     Indication: PAIN
     Dosage: 50 MG, Q4HR
     Route: 048
  3. DARVOCET-N 50 [Concomitant]
     Dosage: UNK
     Dates: start: 20081024
  4. SULFAMETHOXAZOLE AND TRIMETHOPRIM [Concomitant]
     Dosage: UNK UNK, BID
     Route: 048
  5. YAZ [Suspect]
     Indication: CONTRACEPTION
     Dosage: UNK
     Route: 048
     Dates: start: 20080101, end: 20090101

REACTIONS (4)
  - CHOLECYSTITIS CHRONIC [None]
  - PAIN [None]
  - CHOLECYSTECTOMY [None]
  - CHOLELITHIASIS [None]
